FAERS Safety Report 10900072 (Version 5)
Quarter: 2015Q3

REPORT INFORMATION
  Report Type: Spontaneous
  Country: JP (occurrence: JP)
  Receive Date: 20150310
  Receipt Date: 20150709
  Transmission Date: 20151125
  Serious: Yes (Death)
  Sender: FDA-Public Use
  Company Number: JP-ROCHE-1548965

PATIENT
  Age: 75 Year
  Sex: Female
  Weight: 54 kg

DRUGS (69)
  1. ACTEMRA [Suspect]
     Active Substance: TOCILIZUMAB
     Route: 058
     Dates: start: 20150120, end: 20150217
  2. RINDERON V [Suspect]
     Active Substance: BETAMETHASONE VALERATE
     Dosage: TAPARED FROM 5.5MG TO 2.5MG
     Route: 042
     Dates: start: 20141107, end: 20141122
  3. RINDERON V [Suspect]
     Active Substance: BETAMETHASONE VALERATE
     Dosage: TAPARED FROM 5.5MG TO 2.5MG
     Route: 042
     Dates: start: 20150117, end: 20150123
  4. METHYLPREDNISOLONE SODIUM SUCCINATE. [Suspect]
     Active Substance: METHYLPREDNISOLONE SODIUM SUCCINATE
     Indication: STILL^S DISEASE ADULT ONSET
     Route: 041
     Dates: start: 20140929, end: 20141001
  5. METHYLPREDNISOLONE SODIUM SUCCINATE. [Suspect]
     Active Substance: METHYLPREDNISOLONE SODIUM SUCCINATE
     Route: 041
     Dates: start: 20150102, end: 20150104
  6. METHYLPREDNISOLON [Suspect]
     Active Substance: METHYLPREDNISOLONE
     Indication: STILL^S DISEASE ADULT ONSET
     Dosage: 29/SEP/2014, 10/1, 10/14-10/16, 11/4-6, 2015/1/2-1/4.
     Route: 048
     Dates: start: 201408, end: 201409
  7. DORIPENEM [Concomitant]
     Active Substance: DORIPENEM
     Route: 065
     Dates: start: 20141001
  8. PURSENNID [Concomitant]
     Active Substance: SENNOSIDES A AND B
     Indication: CONSTIPATION
  9. DENOSINE [Concomitant]
     Active Substance: GANCICLOVIR
     Route: 065
     Dates: start: 20150120, end: 20150203
  10. RINDERON V [Suspect]
     Active Substance: BETAMETHASONE VALERATE
     Indication: STILL^S DISEASE ADULT ONSET
     Dosage: TAPARED FROM 5.5MG TO 2.5MG
     Route: 042
     Dates: start: 20141002, end: 20141013
  11. RINDERON V [Suspect]
     Active Substance: BETAMETHASONE VALERATE
     Dosage: TAPARED FROM 5.5MG TO 2.5MG
     Route: 042
     Dates: start: 20141123, end: 20141204
  12. RINDERON V [Suspect]
     Active Substance: BETAMETHASONE VALERATE
     Dosage: TAPARED FROM 5.5MG TO 2.5MG
     Route: 042
     Dates: start: 20141230, end: 20150102
  13. RINDERON V [Suspect]
     Active Substance: BETAMETHASONE VALERATE
     Dosage: TAPARED FROM 5.5MG TO 2.5MG
     Route: 042
     Dates: start: 20150222, end: 20150224
  14. NEXIUM [Concomitant]
     Active Substance: ESOMEPRAZOLE MAGNESIUM
     Dosage: DOSAGE UNCERTAIN.
     Route: 048
     Dates: start: 20141112, end: 20150203
  15. ALDACTONE A [Concomitant]
     Active Substance: SPIRONOLACTONE
     Dosage: DOSAGE UNCERTAIN.
     Route: 048
     Dates: start: 20150102, end: 20150113
  16. RED BLOOD CELLS, CONCENTRATED [Concomitant]
     Active Substance: HUMAN RED BLOOD CELL
     Route: 065
     Dates: start: 20141027, end: 20141027
  17. RED BLOOD CELLS, CONCENTRATED [Concomitant]
     Active Substance: HUMAN RED BLOOD CELL
     Route: 065
     Dates: start: 20150116, end: 20150116
  18. ALBUMINAR [Concomitant]
     Active Substance: ALBUMIN (HUMAN)
     Route: 065
     Dates: start: 20141013, end: 20141013
  19. ALBUMINAR [Concomitant]
     Active Substance: ALBUMIN (HUMAN)
     Route: 065
     Dates: start: 20141016, end: 20141016
  20. VENOGLOBULIN [Concomitant]
     Active Substance: HUMAN IMMUNOGLOBULIN G
     Route: 065
     Dates: start: 20141213, end: 20141215
  21. PAZUFLOXACIN MESILATE [Concomitant]
     Active Substance: PAZUFLOXACIN MESILATE
     Route: 065
     Dates: start: 20141113, end: 20141207
  22. CELESTAMINE (JAPAN) [Suspect]
     Active Substance: BETAMETHASONE\DEXCHLORPHENIRAMINE MALEATE
     Indication: STILL^S DISEASE ADULT ONSET
     Route: 048
     Dates: start: 20140827, end: 201408
  23. MEROPENEM. [Concomitant]
     Active Substance: MEROPENEM
     Route: 065
     Dates: start: 20150118, end: 20150126
  24. TRESIBA [Concomitant]
     Active Substance: INSULIN DEGLUDEC
     Dosage: 2-6 UNITS
     Route: 058
     Dates: start: 20141027, end: 20150224
  25. MAGMITT [Concomitant]
     Active Substance: MAGNESIUM OXIDE
     Indication: CONSTIPATION
  26. RITUXAN [Concomitant]
     Active Substance: RITUXIMAB
     Route: 065
     Dates: start: 20141014, end: 20141014
  27. RITUXAN [Concomitant]
     Active Substance: RITUXIMAB
     Route: 065
     Dates: start: 20141029, end: 20141029
  28. ALBUMINAR [Concomitant]
     Active Substance: ALBUMIN (HUMAN)
     Route: 065
     Dates: start: 20141018, end: 20141018
  29. RINDERON V [Suspect]
     Active Substance: BETAMETHASONE VALERATE
     Dosage: TAPARED FROM 5.5MG TO 2.5MG
     Route: 042
     Dates: start: 20141017, end: 20141027
  30. RINDERON V [Suspect]
     Active Substance: BETAMETHASONE VALERATE
     Dosage: TAPARED FROM 5.5MG TO 2.5MG
     Route: 042
     Dates: start: 20150210, end: 20150221
  31. RINDERON V [Suspect]
     Active Substance: BETAMETHASONE VALERATE
     Dosage: TAPARED FROM 5.5MG TO 2.5MG
     Route: 042
     Dates: start: 20150225, end: 20150228
  32. RINDERON V [Suspect]
     Active Substance: BETAMETHASONE VALERATE
     Dosage: TAPARED FROM 5.5MG TO 2.5MG
     Route: 042
     Dates: start: 20150301, end: 20150302
  33. HUMAN SERUM ALBUMIN [Concomitant]
     Active Substance: ALBUMIN (HUMAN)
     Route: 065
     Dates: start: 20141114, end: 20141119
  34. MEROPENEM. [Concomitant]
     Active Substance: MEROPENEM
     Route: 065
     Dates: start: 20141019, end: 20141111
  35. MEROPENEM. [Concomitant]
     Active Substance: MEROPENEM
     Route: 065
     Dates: start: 20150224, end: 20150227
  36. RED BLOOD CELLS, CONCENTRATED [Concomitant]
     Active Substance: HUMAN RED BLOOD CELL
     Route: 065
     Dates: start: 20141007, end: 20141007
  37. RED BLOOD CELLS, CONCENTRATED [Concomitant]
     Active Substance: HUMAN RED BLOOD CELL
     Route: 065
     Dates: start: 20150129, end: 20150129
  38. PAZUFLOXACIN MESILATE [Concomitant]
     Active Substance: PAZUFLOXACIN MESILATE
     Route: 065
     Dates: start: 20141008, end: 20141017
  39. DENOSINE [Concomitant]
     Active Substance: GANCICLOVIR
     Route: 065
     Dates: start: 20141111, end: 20141202
  40. RINDERON V [Suspect]
     Active Substance: BETAMETHASONE VALERATE
     Dosage: TAPARED FROM 5.5MG TO 2.5MG
     Route: 042
     Dates: start: 20141220, end: 20141229
  41. MEROPENEM. [Concomitant]
     Active Substance: MEROPENEM
     Route: 065
     Dates: start: 20150102, end: 20150106
  42. LASIX [Concomitant]
     Active Substance: FUROSEMIDE
     Dosage: 0.5A 4A
     Route: 065
     Dates: start: 20141114, end: 20150204
  43. RINDERON V [Suspect]
     Active Substance: BETAMETHASONE VALERATE
     Dosage: TAPARED FROM 5.5MG TO 2.5MG
     Route: 042
     Dates: start: 20141205, end: 20141219
  44. METHYLPREDNISOLONE SODIUM SUCCINATE. [Suspect]
     Active Substance: METHYLPREDNISOLONE SODIUM SUCCINATE
     Route: 041
     Dates: start: 20141104, end: 20141106
  45. HUMAN SERUM ALBUMIN [Concomitant]
     Active Substance: ALBUMIN (HUMAN)
     Dosage: DOSAGE UNCERTAIN.
     Route: 065
     Dates: start: 20150123, end: 20150125
  46. LASIX [Concomitant]
     Active Substance: FUROSEMIDE
     Route: 048
     Dates: start: 20150213, end: 20150228
  47. RED BLOOD CELLS, CONCENTRATED [Concomitant]
     Active Substance: HUMAN RED BLOOD CELL
     Route: 065
     Dates: start: 20150204, end: 20150204
  48. ALBUMINAR [Concomitant]
     Active Substance: ALBUMIN (HUMAN)
     Route: 065
     Dates: start: 20140929, end: 20141002
  49. VENOGLOBULIN [Concomitant]
     Active Substance: HUMAN IMMUNOGLOBULIN G
     Route: 065
     Dates: start: 20141114, end: 20141116
  50. FLUCONAZOLE. [Concomitant]
     Active Substance: FLUCONAZOLE
     Route: 065
     Dates: start: 20141011, end: 20141015
  51. RINDERON V [Suspect]
     Active Substance: BETAMETHASONE VALERATE
     Dosage: TAPARED FROM 5.5MG TO 2.5MG
     Route: 042
     Dates: start: 20141028, end: 20141104
  52. RINDERON V [Suspect]
     Active Substance: BETAMETHASONE VALERATE
     Dosage: TAPARED FROM 5.5MG TO 2.5MG
     Route: 042
     Dates: start: 20150124, end: 20150209
  53. METHYLPREDNISOLONE SODIUM SUCCINATE. [Suspect]
     Active Substance: METHYLPREDNISOLONE SODIUM SUCCINATE
     Route: 041
     Dates: start: 20141014, end: 20141016
  54. HUMAN SERUM ALBUMIN [Concomitant]
     Active Substance: ALBUMIN (HUMAN)
     Dosage: DOSAGE UNCERTAIN.
     Route: 065
     Dates: start: 20150108, end: 20150110
  55. MEROPENEM. [Concomitant]
     Active Substance: MEROPENEM
     Route: 065
     Dates: start: 20141002, end: 20141007
  56. HUMALOG [Concomitant]
     Active Substance: INSULIN LISPRO
     Dosage: 6-16 UNITS
     Route: 058
     Dates: start: 20150106, end: 20150223
  57. HUMAN NORMAL IMMUNOGLOBULIN [Concomitant]
     Active Substance: HUMAN IMMUNOGLOBULIN G
     Route: 065
     Dates: start: 20150223, end: 20150223
  58. RITUXAN [Concomitant]
     Active Substance: RITUXIMAB
     Route: 065
     Dates: start: 20141021, end: 20141021
  59. DENOSINE [Concomitant]
     Active Substance: GANCICLOVIR
     Route: 065
     Dates: start: 20141008, end: 20141017
  60. ACTEMRA [Suspect]
     Active Substance: TOCILIZUMAB
     Indication: STILL^S DISEASE ADULT ONSET
     Dosage: DOSE INCREASED
     Route: 058
     Dates: start: 20150106, end: 20150106
  61. RINDERON V [Suspect]
     Active Substance: BETAMETHASONE VALERATE
     Dosage: TAPARED FROM 5.5MG TO 2.5MG
     Route: 042
     Dates: start: 20150105, end: 20150116
  62. VALIXA [Suspect]
     Active Substance: VALGANCICLOVIR
     Indication: BRONCHOPULMONARY ASPERGILLOSIS
     Route: 048
     Dates: start: 20150219, end: 20150227
  63. AMPHOTERICIN B. [Suspect]
     Active Substance: AMPHOTERICIN B
     Indication: BRONCHOPULMONARY ASPERGILLOSIS
     Route: 065
     Dates: start: 20150224, end: 20150226
  64. MEROPENEM. [Concomitant]
     Active Substance: MEROPENEM
     Route: 065
     Dates: start: 20141219, end: 20141223
  65. LASIX [Concomitant]
     Active Substance: FUROSEMIDE
     Route: 048
     Dates: start: 20150205, end: 20150212
  66. RED BLOOD CELLS, CONCENTRATED [Concomitant]
     Active Substance: HUMAN RED BLOOD CELL
     Route: 065
     Dates: start: 20141115, end: 20141115
  67. COLCHICINE. [Concomitant]
     Active Substance: COLCHICINE
     Route: 065
     Dates: start: 20141106, end: 20141108
  68. VENOGLOBULIN [Concomitant]
     Active Substance: HUMAN IMMUNOGLOBULIN G
     Route: 065
     Dates: start: 20141007, end: 20141009
  69. DENOSINE [Concomitant]
     Active Substance: GANCICLOVIR
     Route: 065
     Dates: start: 20141222, end: 20141229

REACTIONS (10)
  - Septic shock [Fatal]
  - Cytomegalovirus enterocolitis [Fatal]
  - Pancytopenia [Fatal]
  - Peritonitis [Fatal]
  - Enterocolitis [Fatal]
  - Off label use [Unknown]
  - Pyrexia [Unknown]
  - Intestinal perforation [Fatal]
  - Hypovolaemic shock [Fatal]
  - Multi-organ failure [Fatal]

NARRATIVE: CASE EVENT DATE: 2015
